FAERS Safety Report 24592964 (Version 1)
Quarter: 2024Q4

REPORT INFORMATION
  Report Type: Spontaneous
  Country: US (occurrence: US)
  Receive Date: 20241108
  Receipt Date: 20241108
  Transmission Date: 20250115
  Serious: No
  Sender: XERIS PHARMACEUTICALS
  Company Number: US-BRIAN CONNER SVP QUALITY AND CHIEF COMPLIANCE OFFICER-2024XER00095

PATIENT
  Sex: Female

DRUGS (2)
  1. GVOKE [Suspect]
     Active Substance: GLUCAGON
     Indication: Blood glucose decreased
     Dosage: UNK
     Route: 065
     Dates: start: 202402
  2. OMNIPOD FIVE [Concomitant]
     Dosage: 1.25 MG/HOUR
     Dates: start: 202309

REACTIONS (1)
  - Drug effect less than expected [Unknown]

NARRATIVE: CASE EVENT DATE: 20240201
